FAERS Safety Report 9106591 (Version 1)
Quarter: 2013Q1

REPORT INFORMATION
  Report Type: Spontaneous
  Country: BR (occurrence: BR)
  Receive Date: 20130221
  Receipt Date: 20130221
  Transmission Date: 20140127
  Serious: Yes (Other)
  Sender: FDA-Public Use
  Company Number: PHHY2013BR015881

PATIENT
  Sex: Female
  Weight: 52 kg

DRUGS (9)
  1. TEGRETOL [Suspect]
     Indication: CONVULSION
     Dosage: 20 MG, QD
     Route: 048
  2. DIOVAN AMLO FIX [Suspect]
     Indication: HYPERTENSION
     Dosage: 1 DF, QD
     Route: 048
  3. DIOVAN [Suspect]
     Indication: HYPERTENSION
     Dosage: 1 DF, QD
     Route: 048
  4. ASPIRINA PREVENT [Concomitant]
     Indication: BLOOD DISORDER
     Dosage: 1 DF, QD
     Route: 048
  5. LIPITOR [Concomitant]
     Indication: BLOOD CHOLESTEROL
     Dosage: 0.5 DF, QD
     Route: 048
  6. PASSIFLORINE [Concomitant]
     Dosage: 10 ML, QD
     Route: 048
  7. ADDERA D3 [Concomitant]
     Indication: MEMORY IMPAIRMENT
     Dosage: 5 DRP, QD
     Route: 048
  8. INSULIN L [Concomitant]
     Indication: DIABETES MELLITUS
     Dosage: 3 IU, QD
     Route: 058
  9. INSULINE NOVO [Concomitant]
     Indication: DIABETES MELLITUS
     Dosage: 3 IU, QD
     Route: 058

REACTIONS (1)
  - Cerebrovascular accident [Recovering/Resolving]
